FAERS Safety Report 9125254 (Version 1)
Quarter: 2013Q1

REPORT INFORMATION
  Report Type: Spontaneous
  Country: US (occurrence: US)
  Receive Date: 20130121
  Receipt Date: 20130121
  Transmission Date: 20140127
  Serious: Yes (Other)
  Sender: FDA-Public Use
  Company Number: US-BAYER-2013-007382

PATIENT
  Age: 21 Year
  Sex: Female

DRUGS (6)
  1. YAZ [Suspect]
  2. GIANVI [Suspect]
  3. IMITREX [Concomitant]
  4. SUMATRIPTAN SUCCINATE [Concomitant]
     Dosage: 100 MG, UNK
  5. ALBUTEROL [Concomitant]
  6. ORTHO TRI CYCLEN [Concomitant]

REACTIONS (1)
  - Deep vein thrombosis [None]
